FAERS Safety Report 5282997-3 (Version None)
Quarter: 2007Q1

REPORT INFORMATION
  Report Type: 
  Country: None (occurrence: None)
  Receive Date: 20070329
  Receipt Date: 20070329
  Transmission Date: 20070707
  Serious: Yes (Hospitalization)
  Sender: FDA-Public Use
  Company Number: None

PATIENT
  Age: 64 Year
  Sex: Male

DRUGS (17)
  1. PIPERACILLIN/TAZOBACTAM 3.375 GRAMS [Suspect]
     Indication: ABDOMINAL INFECTION
     Dosage: 3.375 GRAMS  Q 6 HOURS  IV DRIP
     Route: 041
     Dates: start: 20070127, end: 20070129
  2. AZATHIOPRINE [Suspect]
     Indication: PULMONARY SARCOIDOSIS
     Dosage: 100MG  DAILY  PO
     Route: 048
  3. ACETAMINOPHEN TAB [Concomitant]
  4. ACETAMINOPHEN W/ CODEINE TAB [Concomitant]
  5. AL HYDROX/MG HYDROX/SIMETHICONE SUSP [Concomitant]
  6. ALBUTEROL [Concomitant]
  7. AMITRIPTYLINE TAB [Concomitant]
  8. ASPIRIN [Concomitant]
  9. AZATHIOPRINE TAB [Concomitant]
  10. CALCIUM CARBONATE TAB [Concomitant]
  11. CITALOPRAM TAB [Concomitant]
  12. FELODIPINE SA TAB [Concomitant]
  13. FORMOTEROL CAP [Concomitant]
  14. FUROSEMIDE [Concomitant]
  15. HEPARIN [Concomitant]
  16. IPRATROPIUM BR [Concomitant]
  17. MOMETASONE INHL [Concomitant]

REACTIONS (2)
  - ABDOMINAL PAIN [None]
  - LEUKOPENIA [None]
